FAERS Safety Report 5471450-X (Version None)
Quarter: 2007Q3

REPORT INFORMATION
  Report Type: 
  Country: None (occurrence: None)
  Receive Date: 20070928
  Receipt Date: 20061024
  Transmission Date: 20080115
  Serious: No
  Sender: FDA-Public Use
  Company Number: US-BRISTOL-MYERS SQUIBB COMPANY-13554647

PATIENT
  Age: 44 Year
  Weight: 127 kg

DRUGS (1)
  1. DEFINITY [Suspect]
     Indication: ECHOCARDIOGRAM
     Dosage: DILUTED BOLUS OF 3 CC OF PERFLUTREN IV.
     Route: 040

REACTIONS (1)
  - DYSPNOEA [None]
